FAERS Safety Report 26202434 (Version 1)
Quarter: 2025Q4

REPORT INFORMATION
  Report Type: Spontaneous
  Country: US (occurrence: US)
  Receive Date: 20251226
  Receipt Date: 20251226
  Transmission Date: 20260117
  Serious: Yes (Hospitalization, Other)
  Sender: STRIDES
  Company Number: US-STRIDES ARCOLAB LIMITED-2025SP015661

PATIENT
  Age: 93 Year
  Sex: Male

DRUGS (6)
  1. AMOXICILLIN [Suspect]
     Active Substance: AMOXICILLIN
     Indication: Urinary tract infection
     Dosage: UNK
     Route: 065
  2. AMOXICILLIN [Suspect]
     Active Substance: AMOXICILLIN
     Indication: Proteus infection
  3. CEPHALEXIN [Suspect]
     Active Substance: CEPHALEXIN
     Indication: Urinary tract infection
     Dosage: UNK
     Route: 065
  4. CEPHALEXIN [Suspect]
     Active Substance: CEPHALEXIN
     Indication: Proteus infection
  5. CEFPODOXIME [Suspect]
     Active Substance: CEFPODOXIME
     Indication: Urinary tract infection
     Dosage: UNK
     Route: 065
  6. CEFPODOXIME [Suspect]
     Active Substance: CEFPODOXIME
     Indication: Proteus infection

REACTIONS (2)
  - Endocarditis [Unknown]
  - Drug ineffective [Unknown]
